FAERS Safety Report 24294219 (Version 2)
Quarter: 2025Q3

REPORT INFORMATION
  Report Type: Spontaneous
  Country: US (occurrence: US)
  Receive Date: 20240906
  Receipt Date: 20250905
  Transmission Date: 20251021
  Serious: No
  Sender: DOMPE FARMACEUTICI
  Company Number: US-FARMAPROD-202405-2057

PATIENT
  Age: 89 Year
  Sex: Female

DRUGS (16)
  1. OXERVATE [Suspect]
     Active Substance: CENEGERMIN-BKBJ
     Indication: Neurotrophic keratopathy
     Route: 047
     Dates: start: 20240507
  2. OXERVATE [Suspect]
     Active Substance: CENEGERMIN-BKBJ
  3. OXERVATE [Suspect]
     Active Substance: CENEGERMIN-BKBJ
  4. TELMISARTAN [Concomitant]
     Active Substance: TELMISARTAN
  5. CALCITRIOL [Concomitant]
     Active Substance: CALCITRIOL
  6. DIAZEPAM [Concomitant]
     Active Substance: DIAZEPAM
  7. ASPIRIN [Concomitant]
     Active Substance: ASPIRIN
  8. ROSUVASTATIN CALCIUM [Concomitant]
     Active Substance: ROSUVASTATIN CALCIUM
  9. TRIAMTERENE-HYDROCHLOROTHIAZID [Concomitant]
  10. VENTOLIN [Concomitant]
     Active Substance: ALBUTEROL SULFATE
  11. METFORMIN [Concomitant]
     Active Substance: METFORMIN HYDROCHLORIDE
  12. OMEPRAZOLE [Concomitant]
     Active Substance: OMEPRAZOLE
  13. ADVAIR HFA [Concomitant]
     Active Substance: FLUTICASONE PROPIONATE\SALMETEROL XINAFOATE
  14. THERATEARS [Concomitant]
     Active Substance: CARBOXYMETHYLCELLULOSE SODIUM
  15. ERYTHROMYCIN [Concomitant]
     Active Substance: ERYTHROMYCIN
  16. OFLOXACIN [Concomitant]
     Active Substance: OFLOXACIN

REACTIONS (3)
  - Wrong technique in product usage process [Unknown]
  - Eye pain [Not Recovered/Not Resolved]
  - Product dose omission issue [Unknown]

NARRATIVE: CASE EVENT DATE: 20240528
